FAERS Safety Report 8955699 (Version 2)
Quarter: 2013Q1

REPORT INFORMATION
  Report Type: Spontaneous
  Country: US (occurrence: US)
  Receive Date: 20121210
  Receipt Date: 20130128
  Transmission Date: 20140127
  Serious: No
  Sender: FDA-Public Use
  Company Number: US-009507513-1212USA003030

PATIENT
  Age: 42 Year
  Sex: Female

DRUGS (3)
  1. PEG-INTRON [Suspect]
     Indication: HEPATITIS C
     Dosage: REDIPEN
     Dates: start: 20121019
  2. RIBAVIRIN [Suspect]
     Indication: HEPATITIS C
     Dosage: UNK
     Dates: start: 20121019
  3. VICTRELIS [Suspect]
     Indication: HEPATITIS C
     Dosage: UNK
     Dates: start: 20121207

REACTIONS (8)
  - Rash [Unknown]
  - Rash [Unknown]
  - Urticaria [Unknown]
  - Rash pruritic [Unknown]
  - Thirst [Unknown]
  - Visual acuity reduced [Unknown]
  - Menstrual disorder [Unknown]
  - Injection site reaction [Unknown]
